FAERS Safety Report 10279387 (Version 2)
Quarter: 2014Q3

REPORT INFORMATION
  Report Type: Report from Study
  Country: CA (occurrence: CA)
  Receive Date: 20140707
  Receipt Date: 20140707
  Transmission Date: 20150326
  Serious: Yes (Death, Other)
  Sender: FDA-Public Use
  Company Number: PHHY2013CA014993

PATIENT
  Sex: Female

DRUGS (4)
  1. NOLVADEX [Concomitant]
     Active Substance: TAMOXIFEN CITRATE
  2. FEMARA [Concomitant]
     Active Substance: LETROZOLE
  3. AFINITOR [Suspect]
     Active Substance: EVEROLIMUS
     Indication: BREAST CANCER METASTATIC
     Dosage: 10 MG, QD
     Route: 048
     Dates: start: 20120815
  4. AROMASIN [Concomitant]
     Active Substance: EXEMESTANE
     Dosage: 2.5 MG
     Dates: start: 201208

REACTIONS (7)
  - Death [Fatal]
  - Breast cancer metastatic [Unknown]
  - Fatigue [Unknown]
  - Mouth ulceration [Unknown]
  - Nausea [Unknown]
  - Aphthous stomatitis [Unknown]
  - Malignant neoplasm progression [Unknown]
